FAERS Safety Report 13277246 (Version 5)
Quarter: 2017Q4

REPORT INFORMATION
  Report Type: Spontaneous
  Country: GB (occurrence: GB)
  Receive Date: 20170228
  Receipt Date: 20171006
  Transmission Date: 20180320
  Serious: Yes (Other)
  Sender: FDA-Public Use
  Company Number: GB-PFIZER INC-2015393350

PATIENT
  Age: 42 Year
  Sex: Female

DRUGS (5)
  1. HERCEPTIN [Suspect]
     Active Substance: TRASTUZUMAB
     Dosage: UNK, CYCLIC (CYCLICAL)
     Route: 065
  2. NEULASTA [Suspect]
     Active Substance: PEGFILGRASTIM
     Dosage: UNK, CYCLIC (CYCLICAL)
     Route: 065
  3. DOCETAXEL. [Suspect]
     Active Substance: DOCETAXEL
     Dosage: UNK, CYCLIC (CYCLICAL)
     Route: 065
  4. PERJETA [Suspect]
     Active Substance: PERTUZUMAB
     Dosage: UNK, CYCLIC (CYCLICAL)
     Route: 065
  5. EMEND [Suspect]
     Active Substance: APREPITANT
     Dosage: UNK (CYCLE 7)
     Route: 048

REACTIONS (9)
  - Fatigue [Recovered/Resolved]
  - Neuropathy peripheral [Unknown]
  - Diarrhoea [Not Recovered/Not Resolved]
  - Nausea [Not Recovered/Not Resolved]
  - Dyspnoea [Unknown]
  - Alopecia [Not Recovered/Not Resolved]
  - Rash [Not Recovered/Not Resolved]
  - Tumour pain [Recovered/Resolved]
  - Gastrooesophageal reflux disease [Recovered/Resolved]
